FAERS Safety Report 20694421 (Version 3)
Quarter: 2022Q3

REPORT INFORMATION
  Report Type: Spontaneous
  Country: US (occurrence: US)
  Receive Date: 20220411
  Receipt Date: 20220715
  Transmission Date: 20221026
  Serious: No
  Sender: FDA-Public Use
  Company Number: US-BIOGEN-2022BI01113099

PATIENT
  Sex: Female

DRUGS (1)
  1. TYSABRI [Suspect]
     Active Substance: NATALIZUMAB
     Indication: Multiple sclerosis
     Dosage: SINGLE DOSE VIAL (SDV) PREFILLED 15 ML 1^S
     Route: 050
     Dates: end: 202204

REACTIONS (2)
  - Cough [Unknown]
  - Illness [Unknown]
